FAERS Safety Report 11413391 (Version 3)
Quarter: 2015Q4

REPORT INFORMATION
  Report Type: Spontaneous
  Country: US (occurrence: US)
  Receive Date: 20150821
  Receipt Date: 20151120
  Transmission Date: 20160304
  Serious: No
  Sender: FDA-Public Use
  Company Number: US-ELI_LILLY_AND_COMPANY-US201205010145

PATIENT
  Age: 69 Year
  Sex: Female

DRUGS (8)
  1. FORTEO [Interacting]
     Active Substance: TERIPARATIDE
     Indication: OSTEOPOROSIS
     Dosage: 20 UG, QD
     Route: 065
     Dates: start: 20120515
  2. NEUPOGEN [Interacting]
     Active Substance: FILGRASTIM
     Indication: PLATELET COUNT DECREASED
     Dosage: 480 UG, WEEKLY (1/W)
  3. SPIRONOLACTON [Concomitant]
     Active Substance: SPIRONOLACTONE
     Dosage: 50 MG, BID
  4. FORTEO [Interacting]
     Active Substance: TERIPARATIDE
     Dosage: 20 UG, QD
  5. VITAMIN D [Concomitant]
     Active Substance: CHOLECALCIFEROL
     Dosage: 50000 U, WEEKLY (1/W)
  6. FORTEO [Interacting]
     Active Substance: TERIPARATIDE
     Dosage: 20 UG, OTHER
  7. PROPANOLOL [Concomitant]
     Active Substance: PROPRANOLOL HYDROCHLORIDE
     Dosage: 10 MG, BID
  8. HUMULIN N [Suspect]
     Active Substance: INSULIN HUMAN
     Indication: DIABETES MELLITUS
     Dosage: 65 IU, QD

REACTIONS (15)
  - Sleep disorder due to a general medical condition [Recovered/Resolved]
  - Injection site pain [Unknown]
  - Nausea [Unknown]
  - Feeling cold [Unknown]
  - Insomnia [Unknown]
  - Diarrhoea [Recovered/Resolved]
  - Drug interaction [Unknown]
  - Malaise [Recovered/Resolved]
  - Pyrexia [Recovered/Resolved]
  - Pyrexia [Recovered/Resolved]
  - Vomiting [Recovered/Resolved]
  - Pyrexia [Recovered/Resolved]
  - Diarrhoea [Unknown]
  - Chills [Unknown]
  - Chills [Recovered/Resolved]

NARRATIVE: CASE EVENT DATE: 20120515
